FAERS Safety Report 9203175 (Version 1)
Quarter: 2013Q2

REPORT INFORMATION
  Report Type: Spontaneous
  Country: AR (occurrence: AR)
  Receive Date: 20130402
  Receipt Date: 20130402
  Transmission Date: 20140414
  Serious: Yes (Other)
  Sender: FDA-Public Use
  Company Number: AR-AMGEN-ARGSP2013022421

PATIENT
  Age: 65 Year
  Sex: Female

DRUGS (1)
  1. ENBREL [Suspect]
     Indication: RHEUMATOID ARTHRITIS
     Dosage: 50 MG, WEEKLY
     Dates: start: 20100805

REACTIONS (4)
  - Cataract [Not Recovered/Not Resolved]
  - Nervousness [Unknown]
  - Visual impairment [Unknown]
  - Drug ineffective [Not Recovered/Not Resolved]
